FAERS Safety Report 15407803 (Version 1)
Quarter: 2018Q3

REPORT INFORMATION
  Report Type: Spontaneous
  Country: NO (occurrence: NO)
  Receive Date: 20180920
  Receipt Date: 20180920
  Transmission Date: 20181010
  Serious: Yes (Hospitalization, Other)
  Sender: FDA-Public Use
  Company Number: NO-TEVA-2018-NO-956696

PATIENT
  Age: 51 Year
  Sex: Male

DRUGS (8)
  1. ADALAT [Concomitant]
     Active Substance: NIFEDIPINE
     Indication: HYPERTENSION
     Route: 065
  2. PLAVIX [Concomitant]
     Active Substance: CLOPIDOGREL BISULFATE
     Indication: PROPHYLAXIS
     Route: 065
  3. LIPITOR [Suspect]
     Active Substance: ATORVASTATIN CALCIUM
     Indication: ARTERIOSCLEROSIS
     Route: 065
     Dates: start: 2013, end: 20150401
  4. LIPITOR [Suspect]
     Active Substance: ATORVASTATIN CALCIUM
     Route: 065
     Dates: start: 20060526
  5. ALBYL?E [Concomitant]
     Active Substance: ASPIRIN\MAGNESIUM OXIDE
     Indication: PROPHYLAXIS
     Route: 065
  6. CARDURAN [Concomitant]
     Active Substance: DOXAZOSIN MESYLATE
     Indication: GOUT
     Route: 065
  7. SIMVASTATIN. [Suspect]
     Active Substance: SIMVASTATIN
     Indication: BLOOD CHOLESTEROL INCREASED
     Dosage: FOR A SHORT PERIOD OF TIME
     Route: 065
  8. LOSARTAN. [Concomitant]
     Active Substance: LOSARTAN
     Indication: HYPERTENSION
     Route: 065

REACTIONS (18)
  - Urinary tract disorder [Unknown]
  - Haematospermia [Unknown]
  - Influenza like illness [Unknown]
  - Musculoskeletal stiffness [Unknown]
  - Memory impairment [Unknown]
  - Speech disorder [Unknown]
  - Dyschezia [Unknown]
  - Erectile dysfunction [Unknown]
  - Facial paresis [Unknown]
  - Myocardial infarction [Unknown]
  - Testicular mass [Unknown]
  - Muscle contractions involuntary [Unknown]
  - Urine output increased [Unknown]
  - Visual field defect [Unknown]
  - Haemorrhage subcutaneous [Recovered/Resolved]
  - Cerebral haemorrhage [Unknown]
  - Amnesia [Recovered/Resolved]
  - Cerebral infarction [Unknown]

NARRATIVE: CASE EVENT DATE: 20060401
